FAERS Safety Report 11905620 (Version 2)
Quarter: 2016Q1

REPORT INFORMATION
  Report Type: Spontaneous
  Country: US (occurrence: US)
  Receive Date: 20160109
  Receipt Date: 20160111
  Transmission Date: 20160526
  Serious: No
  Sender: FDA-Public Use
  Company Number: US-ELI_LILLY_AND_COMPANY-US201512003333

PATIENT
  Age: 64 Year
  Sex: Female
  Weight: 96.15 kg

DRUGS (1)
  1. HUMALOG [Suspect]
     Active Substance: INSULIN LISPRO
     Indication: PRODUCT USED FOR UNKNOWN INDICATION
     Dosage: UNK, UNKNOWN
     Route: 058

REACTIONS (9)
  - Erythema [Unknown]
  - Headache [Unknown]
  - Pruritus [Unknown]
  - Feeling hot [Unknown]
  - Pain [Unknown]
  - Blood glucose increased [Unknown]
  - Malaise [Unknown]
  - Injection site mass [Unknown]
  - Lethargy [Unknown]

NARRATIVE: CASE EVENT DATE: 20151209
